FAERS Safety Report 8488920-2 (Version None)
Quarter: 2012Q3

REPORT INFORMATION
  Report Type: 
  Country: None (occurrence: None)
  Receive Date: 20120705
  Receipt Date: 20120628
  Transmission Date: 20120928
  Serious: Yes (Other)
  Sender: FDA-Public Use
  Company Number: JP-B.I. PHARMACEUTICALS,INC./RIDGEFIELD-2012-BP-13845NB

PATIENT
  Sex: Female

DRUGS (7)
  1. CELEBREX [Concomitant]
     Dosage: 200 MG
     Route: 048
  2. ISOSORBIDE DINITRATE [Concomitant]
     Dosage: 40 MG
     Route: 048
  3. PRADAXA [Suspect]
     Indication: THROMBOSIS PROPHYLAXIS
     Dosage: 150 MG
     Route: 048
     Dates: start: 20120121
  4. MICARDIS [Concomitant]
     Dosage: 40 MG
     Route: 048
  5. HALCION [Concomitant]
     Dosage: 0.125 MG
     Route: 048
  6. PLAVIX [Suspect]
     Dosage: 75 MG
     Route: 048
     Dates: start: 20100914
  7. BISOPROLOL FUMARATE [Suspect]
     Dosage: 1.25 MG
     Route: 048
     Dates: start: 20120310, end: 20120413

REACTIONS (3)
  - DYSPEPSIA [None]
  - GASTRITIS [None]
  - CARDIAC FAILURE [None]
